FAERS Safety Report 8862774 (Version 3)
Quarter: 2014Q2

REPORT INFORMATION
  Report Type: Report from Study
  Country: DE (occurrence: DE)
  Receive Date: 20121026
  Receipt Date: 20140512
  Transmission Date: 20141212
  Serious: Yes (Hospitalization)
  Sender: FDA-Public Use
  Company Number: DE-ROCHE-1148124

PATIENT
  Age: 70 Year
  Sex: Male

DRUGS (4)
  1. RANIBIZUMAB [Suspect]
     Indication: AGE-RELATED MACULAR DEGENERATION
     Dosage: 04/OCT/2012 PATIENT RECIVED LAST DOSE PRIOR TO SAE
     Route: 050
     Dates: start: 20120426
  2. RANIBIZUMAB [Suspect]
     Route: 050
     Dates: start: 20120524
  3. RANIBIZUMAB [Suspect]
     Route: 050
     Dates: start: 20120621
  4. FLOXAL [Concomitant]
     Route: 065
     Dates: start: 20120427

REACTIONS (2)
  - Heart valve stenosis [Recovering/Resolving]
  - Angina pectoris [Recovering/Resolving]
